FAERS Safety Report 8366137-X (Version None)
Quarter: 2012Q2

REPORT INFORMATION
  Report Type: 
  Country: None (occurrence: None)
  Receive Date: 20120515
  Receipt Date: 20120503
  Transmission Date: 20120825
  Serious: Yes (Other)
  Sender: FDA-Public Use
  Company Number: 2012MA001999

PATIENT
  Age: 40 Year
  Sex: Male

DRUGS (1)
  1. SERTRALINE HYDROCHLORIDE [Suspect]
     Indication: DEPRESSION

REACTIONS (4)
  - PERSONALITY CHANGE [None]
  - ANXIETY [None]
  - INSOMNIA [None]
  - MENTAL DISORDER [None]
